FAERS Safety Report 6984746-7 (Version None)
Quarter: 2010Q3

REPORT INFORMATION
  Report Type: 
  Country: None (occurrence: None)
  Receive Date: 20100913
  Receipt Date: 20100830
  Transmission Date: 20110219
  Serious: Yes (Other)
  Sender: FDA-Public Use
  Company Number: MC201000241

PATIENT
  Age: 51 Year
  Sex: Male
  Weight: 61 kg

DRUGS (7)
  1. ANGIOMAX [Suspect]
     Indication: CARDIOPULMONARY BYPASS
     Dosage: 2 MG/KG, INTRAVENOUS; 2.5 MG/KG/HR INFUSION
     Route: 042
  2. HYDRALAZINE HCL (HYDRALAZINE HCL) [Concomitant]
  3. LISINOPRIL (LISINOPRIL DIHYDRATE) [Concomitant]
  4. FUROSEMIDE (FUROSEMIDE SODIUM) [Concomitant]
  5. SIMVASTATIN [Concomitant]
  6. AMINOCAPROIC ACID [Concomitant]
  7. WARFARIN SODIUM [Concomitant]

REACTIONS (2)
  - OFF LABEL USE [None]
  - THROMBOSIS [None]
